FAERS Safety Report 20893832 (Version 2)
Quarter: 2022Q3

REPORT INFORMATION
  Report Type: Spontaneous
  Country: JP (occurrence: JP)
  Receive Date: 20220531
  Receipt Date: 20220712
  Transmission Date: 20221026
  Serious: Yes (Life-Threatening)
  Sender: FDA-Public Use
  Company Number: JP-TEVA-2022-JP-002216J

PATIENT
  Age: 87 Year
  Sex: Female

DRUGS (8)
  1. MINOCYCLINE HYDROCHLORIDE [Suspect]
     Active Substance: MINOCYCLINE HYDROCHLORIDE
     Indication: Urinary tract infection bacterial
     Dosage: 200 MILLIGRAM DAILY; FOR I.V. INFUSION 100MG ^TAIYO^
     Route: 041
     Dates: start: 20220324, end: 20220411
  2. NEXIUM [Suspect]
     Active Substance: ESOMEPRAZOLE MAGNESIUM
     Indication: Gastrooesophageal reflux disease
     Dosage: 20 MILLIGRAM DAILY;
     Route: 048
     Dates: start: 20220404, end: 20220411
  3. LICORICE ROOT EXTRACT\RHUBARB [Concomitant]
     Active Substance: LICORICE ROOT EXTRACT\RHUBARB
     Indication: Product used for unknown indication
     Route: 065
  4. CALCIUM CARBONATE\CHOLECALCIFEROL\MAGNESIUM CARBONATE [Concomitant]
     Active Substance: CALCIUM CARBONATE\CHOLECALCIFEROL\MAGNESIUM CARBONATE
     Indication: Product used for unknown indication
     Route: 065
  5. CAFFEINE\PHENOBARBITAL\PHENYTOIN\SODIUM BENZOATE [Concomitant]
     Active Substance: CAFFEINE\PHENOBARBITAL\PHENYTOIN\SODIUM BENZOATE
     Indication: Product used for unknown indication
     Route: 065
  6. LEVETIRACETAM [Concomitant]
     Active Substance: LEVETIRACETAM
     Indication: Product used for unknown indication
     Route: 065
  7. IMIDAFENACIN [Concomitant]
     Active Substance: IMIDAFENACIN
     Indication: Product used for unknown indication
     Route: 065
  8. SODIUM FERROUS CITRATE [Concomitant]
     Active Substance: SODIUM FERROUS CITRATE
     Indication: Product used for unknown indication
     Route: 065

REACTIONS (2)
  - Platelet count decreased [Recovered/Resolved]
  - Hepatic function abnormal [Recovered/Resolved]

NARRATIVE: CASE EVENT DATE: 20220411
